FAERS Safety Report 15911081 (Version 1)
Quarter: 2019Q1

REPORT INFORMATION
  Report Type: Spontaneous
  Country: US (occurrence: US)
  Receive Date: 20190204
  Receipt Date: 20190204
  Transmission Date: 20190417
  Serious: No
  Sender: FDA-Public Use
  Company Number: US-ABBVIE-18K-163-2401071-00

PATIENT
  Sex: Female
  Weight: 72.64 kg

DRUGS (12)
  1. HUMIRA [Suspect]
     Active Substance: ADALIMUMAB
     Indication: RHEUMATOID ARTHRITIS
     Route: 058
     Dates: start: 20180105, end: 20180315
  2. METHOTREXATE. [Concomitant]
     Active Substance: METHOTREXATE
     Indication: PRODUCT USED FOR UNKNOWN INDICATION
  3. METHOTREXATE. [Concomitant]
     Active Substance: METHOTREXATE
     Route: 048
  4. METHOTREXATE. [Concomitant]
     Active Substance: METHOTREXATE
     Route: 048
     Dates: start: 201712
  5. NAPROXEN. [Concomitant]
     Active Substance: NAPROXEN
     Indication: PRODUCT USED FOR UNKNOWN INDICATION
  6. FOLIC ACID. [Concomitant]
     Active Substance: FOLIC ACID
     Indication: PRODUCT USED FOR UNKNOWN INDICATION
  7. ENBREL [Suspect]
     Active Substance: ETANERCEPT
     Indication: RHEUMATOID ARTHRITIS
     Route: 058
     Dates: start: 20171108, end: 201711
  8. XELJANZ XR [Concomitant]
     Active Substance: TOFACITINIB CITRATE
     Indication: RHEUMATOID ARTHRITIS
     Route: 048
     Dates: start: 201801, end: 2018
  9. XELJANZ XR [Concomitant]
     Active Substance: TOFACITINIB CITRATE
     Route: 048
     Dates: start: 2018
  10. TYLENOL [Concomitant]
     Active Substance: ACETAMINOPHEN
     Indication: PRODUCT USED FOR UNKNOWN INDICATION
  11. ENBREL [Suspect]
     Active Substance: ETANERCEPT
     Route: 058
     Dates: start: 20171201, end: 20171228
  12. ENBREL [Suspect]
     Active Substance: ETANERCEPT
     Route: 058
     Dates: end: 20180610

REACTIONS (36)
  - Gait disturbance [Unknown]
  - Pain [Unknown]
  - Injection site bruising [Unknown]
  - Injection site urticaria [Unknown]
  - Erythema [Unknown]
  - Scratch [Unknown]
  - Malaise [Unknown]
  - Skin lesion [Unknown]
  - Swelling [Unknown]
  - Arthropathy [Unknown]
  - Pain in extremity [Unknown]
  - Rheumatoid nodule [Not Recovered/Not Resolved]
  - Swelling of eyelid [Unknown]
  - Vomiting [Unknown]
  - Injection site swelling [Recovering/Resolving]
  - Lymphadenopathy [Unknown]
  - Lacrimation increased [Unknown]
  - Dyspnoea [Unknown]
  - Paraesthesia [Unknown]
  - Myalgia [Unknown]
  - Heat oedema [Unknown]
  - Hypoaesthesia [Unknown]
  - Injection site urticaria [Unknown]
  - Injection site erythema [Unknown]
  - Arthralgia [Unknown]
  - Drug effect decreased [Unknown]
  - Crying [Unknown]
  - Swelling face [Unknown]
  - Rash papular [Unknown]
  - Urticaria [Unknown]
  - Conjunctivitis [Unknown]
  - Drug ineffective [Unknown]
  - Ocular hyperaemia [Unknown]
  - Rash pruritic [Unknown]
  - Nausea [Unknown]
  - Mobility decreased [Unknown]

NARRATIVE: CASE EVENT DATE: 2018
